FAERS Safety Report 5138389-0 (Version None)
Quarter: 2006Q4

REPORT INFORMATION
  Report Type: 
  Country: None (occurrence: None)
  Receive Date: 20061030
  Receipt Date: 20060216
  Transmission Date: 20070319
  Serious: No
  Sender: FDA-Public Use
  Company Number: US-GLAXOSMITHKLINE-A0594008A

PATIENT
  Age: 93 Year
  Sex: Female

DRUGS (7)
  1. ADVAIR HFA [Suspect]
     Indication: WHEEZING
     Dosage: 1BLS TWICE PER DAY
     Route: 055
     Dates: start: 20051206, end: 20051222
  2. ALBUTEROL [Concomitant]
  3. DIOVAN [Concomitant]
  4. LEVOXYL [Concomitant]
  5. CENTRUM [Concomitant]
  6. CALCIUM GLUCONATE [Concomitant]
  7. TYLENOL [Concomitant]

REACTIONS (8)
  - APHONIA [None]
  - CHAPPED LIPS [None]
  - CHEILITIS [None]
  - DYSPHONIA [None]
  - DYSPNOEA [None]
  - OEDEMA MOUTH [None]
  - SENSATION OF FOREIGN BODY [None]
  - SWOLLEN TONGUE [None]
